FAERS Safety Report 14037386 (Version 1)
Quarter: 2017Q4

REPORT INFORMATION
  Report Type: Spontaneous
  Country: US (occurrence: US)
  Receive Date: 20171003
  Receipt Date: 20171003
  Transmission Date: 20180321
  Serious: Yes (Other)
  Sender: FDA-Public Use
  Company Number: None

PATIENT
  Age: 66 Year
  Sex: Male
  Weight: 101 kg

DRUGS (11)
  1. OXYCODONE [Concomitant]
     Active Substance: OXYCODONE
  2. ATORVASTATIN [Concomitant]
     Active Substance: ATORVASTATIN
  3. LISINOPRIL. [Concomitant]
     Active Substance: LISINOPRIL
  4. XARELTO [Concomitant]
     Active Substance: RIVAROXABAN
  5. HARVONI [Suspect]
     Active Substance: LEDIPASVIR\SOFOSBUVIR
     Indication: HEPATITIS C VIRUS TEST
     Route: 048
     Dates: start: 20170830, end: 20170915
  6. DICLOFENAC [Concomitant]
     Active Substance: DICLOFENAC
  7. DIGOXIN. [Concomitant]
     Active Substance: DIGOXIN
  8. MULTIVITAMIN [Concomitant]
     Active Substance: VITAMINS
  9. CICLOPIROX. [Concomitant]
     Active Substance: CICLOPIROX
  10. CIALIS [Concomitant]
     Active Substance: TADALAFIL
  11. GABAPENTIN. [Concomitant]
     Active Substance: GABAPENTIN

REACTIONS (6)
  - Palpable purpura [None]
  - International normalised ratio increased [None]
  - Rash [None]
  - Toxicity to various agents [None]
  - Aspartate aminotransferase increased [None]
  - Alanine aminotransferase increased [None]

NARRATIVE: CASE EVENT DATE: 20170915
